FAERS Safety Report 9867641 (Version 3)
Quarter: 2014Q1

REPORT INFORMATION
  Report Type: Report from Study
  Country: FR (occurrence: FR)
  Receive Date: 20140204
  Receipt Date: 20140213
  Transmission Date: 20141002
  Serious: Yes (Hospitalization)
  Sender: FDA-Public Use
  Company Number: FR-ROCHE-1340822

PATIENT
  Age: 53 Year
  Sex: Female
  Weight: 107 kg

DRUGS (21)
  1. VEMURAFENIB [Suspect]
     Indication: MALIGNANT MELANOMA
     Dosage: LAST DOSE PRIOR TO SAE: 22/JAN/2014
     Route: 048
     Dates: start: 20121026
  2. CELLUVISC [Concomitant]
     Dosage: 2 TEARS
     Route: 050
     Dates: start: 20130121, end: 20140122
  3. LANTUS [Concomitant]
     Dosage: 26 U
     Route: 058
  4. METFORMIN [Concomitant]
     Route: 048
     Dates: end: 20140122
  5. AMAREL [Concomitant]
     Route: 048
     Dates: end: 20131110
  6. DIAMOX [Concomitant]
     Route: 048
     Dates: end: 20121220
  7. TOBRADEX [Concomitant]
     Dosage: 2 TEARS OCCULAR
     Route: 065
     Dates: end: 20130121
  8. TRAVOPROST [Concomitant]
     Dosage: 1 TEAR OCCULAR
     Route: 065
     Dates: end: 20130121
  9. COAPROVEL [Concomitant]
     Route: 048
  10. CARDENSIEL [Concomitant]
     Route: 048
  11. DIFFU-K [Concomitant]
     Route: 048
     Dates: start: 20121014, end: 20121220
  12. LEXOMIL [Concomitant]
     Route: 048
     Dates: start: 20121024, end: 20130415
  13. DEXERYL (FRANCE) [Concomitant]
     Dosage: TRANSCUTANEOUS AS REQUIRED
     Route: 065
     Dates: start: 20121126, end: 20121220
  14. DEXERYL (FRANCE) [Concomitant]
     Dosage: TRANNSCUTANEOUS 1 APPLICATION
     Route: 065
     Dates: start: 20130610
  15. FUCIDINE [Concomitant]
     Dosage: TRANSCUTANEOUS
     Route: 065
     Dates: start: 20121112, end: 20121119
  16. ATARAX (FRANCE) [Concomitant]
     Route: 048
     Dates: start: 20130415, end: 20130513
  17. ATARAX (FRANCE) [Concomitant]
     Dosage: 25
     Route: 065
     Dates: start: 20130805
  18. MOTILIUM [Concomitant]
     Dosage: 3 TOTAL DAILY DOSE
     Route: 065
     Dates: start: 20140123, end: 20140129
  19. MOPRAL (FRANCE) [Concomitant]
     Dosage: DAILY: 20
     Route: 065
     Dates: start: 20140123
  20. PAROXETINE [Concomitant]
     Dosage: DAILY:1
     Route: 065
     Dates: start: 20140122
  21. CALCIPARINE [Concomitant]
     Dosage: DAILY:2
     Route: 065
     Dates: start: 20140123, end: 20140129

REACTIONS (1)
  - Pericardial effusion [Not Recovered/Not Resolved]
